FAERS Safety Report 4281916-6 (Version None)
Quarter: 2004Q1

REPORT INFORMATION
  Report Type: 
  Country: None (occurrence: None)
  Receive Date: 20040128
  Receipt Date: 20040115
  Transmission Date: 20041129
  Serious: No
  Sender: FDA-Public Use
  Company Number: 04H-028-0247644-00

PATIENT

DRUGS (1)
  1. FENTANYL CITRATE [Suspect]
     Dates: start: 20040101

REACTIONS (1)
  - DRUG EFFECT INCREASED [None]
